FAERS Safety Report 19349496 (Version 1)
Quarter: 2021Q2

REPORT INFORMATION
  Report Type: Spontaneous
  Country: US (occurrence: US)
  Receive Date: 20210531
  Receipt Date: 20210531
  Transmission Date: 20210717
  Serious: Yes (Disabling)
  Sender: FDA-Public Use
  Company Number: None

PATIENT
  Age: 23 Year
  Sex: Male
  Weight: 77.4 kg

DRUGS (4)
  1. FINASTERIDE 1MG [Suspect]
     Active Substance: FINASTERIDE
     Indication: ANDROGENETIC ALOPECIA
     Dosage: ?          QUANTITY:5 TABLET(S);?
     Route: 048
     Dates: start: 20210507, end: 20210512
  2. VITAMIN D [Concomitant]
     Active Substance: VITAMIN D NOS
  3. MAGNESIUM [Concomitant]
     Active Substance: MAGNESIUM
  4. ZINC. [Concomitant]
     Active Substance: ZINC

REACTIONS (3)
  - Loss of libido [None]
  - Erectile dysfunction [None]
  - Testicular pain [None]

NARRATIVE: CASE EVENT DATE: 20210525
